FAERS Safety Report 4890131-4 (Version None)
Quarter: 2006Q1

REPORT INFORMATION
  Report Type: 
  Country: None (occurrence: None)
  Receive Date: 20060124
  Receipt Date: 20051222
  Transmission Date: 20060701
  Serious: No
  Sender: FDA-Public Use
  Company Number: JP-ABBOTT-05P-087-0320723-00

PATIENT
  Sex: Male

DRUGS (5)
  1. KLARICID [Suspect]
     Indication: ACUTE SINUSITIS
     Route: 048
     Dates: start: 20051212, end: 20051215
  2. CLOFEDANOL HYDROCHLORIDE [Suspect]
     Indication: BRONCHITIS ACUTE
     Route: 048
     Dates: start: 20051212, end: 20051214
  3. SALBUTAMOL SULFATE [Suspect]
     Indication: BRONCHITIS ACUTE
     Route: 048
     Dates: start: 20051214, end: 20051215
  4. MEFENAMIC ACID [Suspect]
     Indication: PAIN
     Route: 048
     Dates: start: 20051212, end: 20051215
  5. SERRAPEPTASE [Concomitant]
     Indication: ACUTE SINUSITIS
     Route: 048
     Dates: start: 20051212, end: 20051215

REACTIONS (1)
  - URINARY RETENTION [None]
